FAERS Safety Report 11214271 (Version 1)
Quarter: 2015Q2

REPORT INFORMATION
  Report Type: Spontaneous
  Country: US (occurrence: US)
  Receive Date: 20150624
  Receipt Date: 20150624
  Transmission Date: 20150821
  Serious: No
  Sender: FDA-Public Use
  Company Number: US-ASTRAZENECA-2015SE59727

PATIENT
  Age: 46 Year
  Sex: Female

DRUGS (12)
  1. ALPRAZOLAM. [Concomitant]
     Active Substance: ALPRAZOLAM
     Indication: URTICARIA
  2. IRON [Concomitant]
     Active Substance: IRON
  3. KLOR-CON [Concomitant]
     Active Substance: POTASSIUM CHLORIDE
     Indication: BLOOD POTASSIUM ABNORMAL
  4. METFORMIN [Concomitant]
     Active Substance: METFORMIN HYDROCHLORIDE
  5. CITALOPRAM [Concomitant]
     Active Substance: CITALOPRAM HYDROBROMIDE
  6. MOVANTIK [Suspect]
     Active Substance: NALOXEGOL OXALATE
     Indication: CONSTIPATION
     Route: 048
     Dates: start: 20150513
  7. BUPROPION [Concomitant]
     Active Substance: BUPROPION
     Indication: DEPRESSION
  8. CACIUM WITH VITAMIN D [Concomitant]
  9. SUCRALFATE. [Concomitant]
     Active Substance: SUCRALFATE
  10. CRESTOR [Suspect]
     Active Substance: ROSUVASTATIN CALCIUM
     Route: 048
  11. HYDROCHLOROTHIAZIDE. [Concomitant]
     Active Substance: HYDROCHLOROTHIAZIDE
  12. SUBOXONE [Concomitant]
     Active Substance: BUPRENORPHINE HYDROCHLORIDE\NALOXONE HYDROCHLORIDE
     Indication: DRUG DEPENDENCE
     Dosage: 2MG 0.5MG SUBLINGUAL 1 FILM THREE TIMES A DAY
     Route: 060
     Dates: start: 20110208

REACTIONS (4)
  - Pain [Unknown]
  - Vomiting [Unknown]
  - Anxiety [Unknown]
  - Rash [Unknown]
